FAERS Safety Report 6738435-4 (Version None)
Quarter: 2010Q2

REPORT INFORMATION
  Report Type: 
  Country: None (occurrence: None)
  Receive Date: 20100524
  Receipt Date: 20100522
  Transmission Date: 20101027
  Serious: Yes (Hospitalization)
  Sender: FDA-Public Use
  Company Number: JP-BAYER-201012384BYL

PATIENT
  Age: 80 Year

DRUGS (1)
  1. SORAFENIB [Suspect]
     Indication: NON-SMALL CELL LUNG CANCER RECURRENT
     Route: 048
     Dates: start: 20100224, end: 20100514

REACTIONS (2)
  - ATRIAL FIBRILLATION [None]
  - METABOLIC ACIDOSIS [None]
